FAERS Safety Report 12305210 (Version 4)
Quarter: 2017Q1

REPORT INFORMATION
  Report Type: Report from Study
  Country: US (occurrence: US)
  Receive Date: 20160426
  Receipt Date: 20170131
  Transmission Date: 20170428
  Serious: Yes (Hospitalization, Other)
  Sender: FDA-Public Use
  Company Number: PHHO2015US016941

PATIENT
  Age: 75 Year
  Sex: Female
  Weight: 84.2 kg

DRUGS (11)
  1. QUINAPRIL. [Concomitant]
     Active Substance: QUINAPRIL
     Indication: HYPERTENSION
     Dosage: 40 MG, QD
     Route: 048
     Dates: start: 2010, end: 20150225
  2. HCTZ [Concomitant]
     Active Substance: HYDROCHLOROTHIAZIDE
     Indication: HYPERTENSION
     Dosage: 25 MG, QD
     Route: 048
     Dates: start: 2010, end: 20150102
  3. LOVENOX [Concomitant]
     Active Substance: ENOXAPARIN SODIUM
     Indication: ATRIAL FIBRILLATION
     Dosage: 120 UG/AT BED TIME
     Route: 048
     Dates: start: 20150220
  4. DABRAFENIB [Suspect]
     Active Substance: DABRAFENIB
     Dosage: 100 MG, BID
     Route: 048
     Dates: start: 20150114, end: 20150526
  5. TRAMETINIB [Suspect]
     Active Substance: TRAMETINIB
     Indication: ANAPLASTIC THYROID CANCER
     Dosage: 2 MG, QD
     Route: 048
     Dates: start: 20141217, end: 20150225
  6. PRILOSEC OTC [Concomitant]
     Active Substance: OMEPRAZOLE MAGNESIUM
     Indication: PROPHYLAXIS
     Dosage: QD
     Route: 048
     Dates: start: 2014, end: 20150505
  7. TRAMETINIB [Suspect]
     Active Substance: TRAMETINIB
     Dosage: 1.5 MG, QD
     Route: 048
     Dates: start: 20150114, end: 20150217
  8. ALEVE [Concomitant]
     Active Substance: NAPROXEN SODIUM
     Indication: ARTHRALGIA
     Dosage: QD
     Route: 048
     Dates: start: 2012
  9. DABRAFENIB [Suspect]
     Active Substance: DABRAFENIB
     Indication: ANAPLASTIC THYROID CANCER
     Dosage: 150 MG, BID
     Route: 048
     Dates: start: 20141217, end: 20150225
  10. AMLODIPINE [Concomitant]
     Active Substance: AMLODIPINE BESYLATE
     Indication: HYPERTENSION
     Dosage: 5 MG, QD
     Route: 048
     Dates: start: 2010, end: 20150225
  11. METOPROLOL. [Concomitant]
     Active Substance: METOPROLOL
     Indication: ATRIAL FIBRILLATION
     Dosage: 25 MG, BID
     Route: 048
     Dates: start: 20150220

REACTIONS (2)
  - Rhabdomyolysis [Recovered/Resolved]
  - Acute kidney injury [Recovered/Resolved]

NARRATIVE: CASE EVENT DATE: 20150217
